FAERS Safety Report 4681249-X (Version None)
Quarter: 2005Q2

REPORT INFORMATION
  Report Type: 
  Country: None (occurrence: None)
  Receive Date: 20050603
  Receipt Date: 20050524
  Transmission Date: 20051028
  Serious: Yes (Hospitalization)
  Sender: FDA-Public Use
  Company Number: JP-JNJFOC-20050505703

PATIENT
  Age: 45 Year
  Sex: Female

DRUGS (4)
  1. TAVANIC [Suspect]
     Indication: PROPHYLAXIS
     Route: 049
     Dates: start: 20050510, end: 20050510
  2. AMPHOTERICIN B [Concomitant]
     Route: 042
  3. PIPERACILLIN [Concomitant]
     Dosage: 4-5 MG
     Route: 042
  4. AMOXICILLIN [Concomitant]
     Route: 042

REACTIONS (1)
  - BONE MARROW DEPRESSION [None]
